FAERS Safety Report 25829591 (Version 2)
Quarter: 2025Q4

REPORT INFORMATION
  Report Type: Spontaneous
  Country: US (occurrence: US)
  Receive Date: 20250922
  Receipt Date: 20251015
  Transmission Date: 20260118
  Serious: No
  Sender: ALEXION PHARMACEUTICALS
  Company Number: 202509USA017037US

PATIENT
  Age: 69 Year
  Sex: Female

DRUGS (1)
  1. BEVESPI AEROSPHERE [Suspect]
     Active Substance: FORMOTEROL FUMARATE\GLYCOPYRROLATE
     Dosage: 9 MICROGRAM, BID
     Route: 065

REACTIONS (9)
  - Dysarthria [Unknown]
  - Memory impairment [Unknown]
  - Medication error [Unknown]
  - Product dose omission issue [Unknown]
  - Overdose [Unknown]
  - Device use issue [Unknown]
  - Device delivery system issue [Unknown]
  - Chronic obstructive pulmonary disease [Unknown]
  - COVID-19 [Unknown]

NARRATIVE: CASE EVENT DATE: 20250913
